FAERS Safety Report 6130781-0 (Version None)
Quarter: 2009Q1

REPORT INFORMATION
  Report Type: 
  Country: None (occurrence: None)
  Receive Date: 20090325
  Receipt Date: 20090225
  Transmission Date: 20090719
  Serious: Yes (Disabling, Other)
  Sender: FDA-Public Use
  Company Number: US-BAYER-200836437NA

PATIENT
  Age: 65 Year
  Sex: Male

DRUGS (11)
  1. MAGNEVIST [Suspect]
     Indication: NUCLEAR MAGNETIC RESONANCE IMAGING
     Dates: start: 20060930, end: 20060930
  2. MAGNEVIST [Suspect]
     Dates: start: 20061026, end: 20061026
  3. MAGNEVIST [Suspect]
     Dates: start: 20061030, end: 20061030
  4. PENTOXIFYLLINE [Concomitant]
     Indication: PLATELET ADHESIVENESS DECREASED
     Dosage: TOTAL DAILY DOSE: 800 MG
  5. LOPRESSOR [Concomitant]
     Indication: HYPERTENSION
     Dosage: TOTAL DAILY DOSE: 150 MG
     Dates: start: 20070101
  6. LISINOPRIL [Concomitant]
     Indication: HYPERTENSION
     Dosage: TOTAL DAILY DOSE: 90 MG
     Dates: start: 20070101
  7. RENAGEL [Concomitant]
     Indication: BLOOD PHOSPHORUS DECREASED
     Dosage: TOTAL DAILY DOSE: 9600 MG
  8. SENSIPAR [Concomitant]
     Indication: BLOOD CALCIUM DECREASED
     Dosage: TOTAL DAILY DOSE: 15 MG
  9. EPOGEN/EPO/PROCRIT [Concomitant]
     Dosage: PRN AFTER DIALYSIS
     Dates: start: 19690101
  10. VITAMINS [Concomitant]
     Indication: SUPPLEMENTATION THERAPY
  11. NORVASC [Concomitant]
     Indication: HYPERTENSION
     Dates: start: 20050101, end: 20060101

REACTIONS (12)
  - ANXIETY [None]
  - DEPRESSION [None]
  - EMOTIONAL DISTRESS [None]
  - INJURY [None]
  - JOINT STIFFNESS [None]
  - MUSCULOSKELETAL STIFFNESS [None]
  - NEPHROGENIC SYSTEMIC FIBROSIS [None]
  - PAIN [None]
  - PRURITUS [None]
  - RENAL IMPAIRMENT [None]
  - SCAR [None]
  - SKIN LESION [None]
